FAERS Safety Report 9458182 (Version 3)
Quarter: 2013Q4

REPORT INFORMATION
  Report Type: Spontaneous
  Country: GB (occurrence: GB)
  Receive Date: 20130814
  Receipt Date: 20131022
  Transmission Date: 20140711
  Serious: Yes (Hospitalization)
  Sender: FDA-Public Use
  Company Number: GB-BRACCO-000751

PATIENT
  Age: 79 Year
  Sex: Male

DRUGS (2)
  1. ACE INHIBITORS [Concomitant]
     Indication: HYPERTENSION
  2. PROHANCE [Suspect]
     Indication: NUCLEAR MAGNETIC RESONANCE IMAGING
     Route: 042
     Dates: start: 20130611, end: 20130611

REACTIONS (2)
  - Angina pectoris [Recovered/Resolved]
  - Paraesthesia [Recovered/Resolved]
